FAERS Safety Report 6627037-6 (Version None)
Quarter: 2010Q1

REPORT INFORMATION
  Report Type: 
  Country: None (occurrence: None)
  Receive Date: 20100301
  Receipt Date: 20090106
  Transmission Date: 20100710
  Serious: Yes (Hospitalization)
  Sender: FDA-Public Use
  Company Number: RB-7823-2009

PATIENT
  Age: 55 Year
  Sex: Female

DRUGS (7)
  1. SUBOXONE [Suspect]
     Indication: DRUG DEPENDENCE
     Dosage: SUBLINGUAL
     Route: 060
     Dates: start: 20070501, end: 20080501
  2. SUBUTEX [Suspect]
     Indication: DRUG DEPENDENCE
     Dosage: 8 MG QD SUBLINGUAL
     Route: 060
     Dates: start: 20080501, end: 20081201
  3. ALCOHOL [Suspect]
     Indication: DRUG USE FOR UNKNOWN INDICATION
  4. ACETAMINOPHEN [Suspect]
     Indication: HEADACHE
     Dosage: ORAL
     Route: 048
  5. LORAZEPAM [Concomitant]
  6. TEMAZEPAM [Concomitant]
  7. EFFEXOR XR [Concomitant]

REACTIONS (4)
  - HEADACHE [None]
  - HEPATIC FAILURE [None]
  - PLATELET COUNT DECREASED [None]
  - RASH [None]
